FAERS Safety Report 17401426 (Version 2)
Quarter: 2020Q1

REPORT INFORMATION
  Report Type: Report from Study
  Country: MX (occurrence: MX)
  Receive Date: 20200211
  Receipt Date: 20200214
  Transmission Date: 20200409
  Serious: Yes (Death, Hospitalization)
  Sender: FDA-Public Use
  Company Number: NVSC2020MX036213

PATIENT
  Sex: Male
  Weight: 67 kg

DRUGS (5)
  1. REVOLADE [Suspect]
     Active Substance: ELTROMBOPAG
     Indication: PLATELET COUNT DECREASED
     Dosage: 1 DF, QD (25 AND 50 MG ALTERNATE AS PER DOCTOR?S PRESCRIPTION)
     Route: 048
     Dates: start: 201806
  2. OMEPRAZOL [Concomitant]
     Active Substance: OMEPRAZOLE
     Indication: GASTRIC DISORDER
     Dosage: 1 DF
     Route: 065
  3. LIBERTRIM [Concomitant]
     Active Substance: TRIMEBUTINE
     Indication: GASTRIC DISORDER
     Dosage: 2 DF
     Route: 065
  4. XELODA [Concomitant]
     Active Substance: CAPECITABINE
     Indication: NEOPLASM MALIGNANT
     Dosage: UNK
     Route: 065
     Dates: start: 20180901
  5. LIBERTRIM [Concomitant]
     Active Substance: TRIMEBUTINE
     Indication: OESOPHAGEAL DISORDER

REACTIONS (3)
  - Malignant neoplasm progression [Fatal]
  - Hepatic failure [Fatal]
  - Metastases to liver [Fatal]
